FAERS Safety Report 15517301 (Version 1)
Quarter: 2018Q4

REPORT INFORMATION
  Report Type: Spontaneous
  Country: FR (occurrence: FR)
  Receive Date: 20181017
  Receipt Date: 20181017
  Transmission Date: 20190205
  Serious: Yes (Hospitalization)
  Sender: FDA-Public Use
  Company Number: FR-ASTRAZENECA-2018SF33186

PATIENT
  Age: 50 Year
  Sex: Male
  Weight: 96 kg

DRUGS (10)
  1. LASILIX [Concomitant]
     Active Substance: FUROSEMIDE
  2. LOXAPAC [Suspect]
     Active Substance: LOXAPINE
     Indication: CONDITION AGGRAVATED
     Route: 048
     Dates: start: 201808
  3. CRESTOR [Concomitant]
     Active Substance: ROSUVASTATIN CALCIUM
  4. PREVISCAN (FLUINDIONE) [Concomitant]
     Active Substance: FLUINDIONE
  5. ENTRESTO [Concomitant]
     Active Substance: SACUBITRIL\VALSARTAN
  6. LACTULOSE. [Concomitant]
     Active Substance: LACTULOSE
  7. QUETIAPINE FUMARATE. [Suspect]
     Active Substance: QUETIAPINE FUMARATE
     Indication: SCHIZOPHRENIA
     Route: 048
  8. DIAZEPAM. [Suspect]
     Active Substance: DIAZEPAM
     Indication: CONDITION AGGRAVATED
     Route: 048
     Dates: start: 201808
  9. TRANSIPEG [Concomitant]
  10. BISOPROLOL FUMARATE. [Concomitant]
     Active Substance: BISOPROLOL FUMARATE

REACTIONS (1)
  - Ischaemic stroke [Recovered/Resolved]

NARRATIVE: CASE EVENT DATE: 20180821
